FAERS Safety Report 20516876 (Version 1)
Quarter: 2022Q1

REPORT INFORMATION
  Report Type: Spontaneous
  Country: IT (occurrence: IT)
  Receive Date: 20220225
  Receipt Date: 20220225
  Transmission Date: 20220423
  Serious: Yes (Hospitalization, Other)
  Sender: FDA-Public Use
  Company Number: IT-WOCKHARDT BIO AG-2022WBA000019

PATIENT
  Age: 76 Year
  Sex: Male

DRUGS (5)
  1. AMOXICILLIN TRIHYDRATE [Suspect]
     Active Substance: AMOXICILLIN
     Indication: Dental discomfort
     Dosage: 500 MILLIGRAM, BID
     Route: 065
  2. AMOXICILLIN TRIHYDRATE [Suspect]
     Active Substance: AMOXICILLIN
     Indication: Gingivitis
     Dosage: 1 GRAM, TID
     Route: 065
  3. IBUPROFEN [Suspect]
     Active Substance: IBUPROFEN
     Indication: Dental discomfort
     Dosage: 600 MILLIGRAM, TID
     Route: 065
  4. IBUPROFEN [Suspect]
     Active Substance: IBUPROFEN
     Indication: Gingivitis
  5. CLAVULANIC ACID [Concomitant]
     Active Substance: CLAVULANIC ACID
     Indication: Product used for unknown indication
     Route: 065

REACTIONS (1)
  - Meningitis aseptic [Recovered/Resolved]
